FAERS Safety Report 13388039 (Version 1)
Quarter: 2017Q1

REPORT INFORMATION
  Report Type: Spontaneous
  Country: US (occurrence: US)
  Receive Date: 20170330
  Receipt Date: 20170330
  Transmission Date: 20170429
  Serious: Yes (Hospitalization)
  Sender: FDA-Public Use
  Company Number: US-BIOGEN-2017BI00378322

PATIENT
  Age: 24 Year
  Sex: Female

DRUGS (1)
  1. ZINBRYTA [Suspect]
     Active Substance: DACLIZUMAB
     Indication: MULTIPLE SCLEROSIS
     Route: 058
     Dates: start: 201609, end: 201610

REACTIONS (2)
  - Musculoskeletal stiffness [Recovered/Resolved]
  - Pupillary disorder [Recovered/Resolved]

NARRATIVE: CASE EVENT DATE: 201609
